FAERS Safety Report 14579398 (Version 1)
Quarter: 2018Q1

REPORT INFORMATION
  Report Type: Report from Study
  Country: US (occurrence: US)
  Receive Date: 20180227
  Receipt Date: 20180227
  Transmission Date: 20180509
  Serious: Yes (Hospitalization, Other)
  Sender: FDA-Public Use
  Company Number: US-ACTELION-A-US2016-139906

PATIENT
  Age: 79 Year
  Sex: Female
  Weight: 67.57 kg

DRUGS (2)
  1. OPSUMIT [Suspect]
     Active Substance: MACITENTAN
     Indication: PULMONARY ARTERIAL HYPERTENSION
     Dosage: 10 MG, QD
     Route: 048
     Dates: start: 20140714
  2. ASPIRIN. [Suspect]
     Active Substance: ASPIRIN
     Indication: PRODUCT USED FOR UNKNOWN INDICATION
     Route: 065

REACTIONS (6)
  - Oesophageal disorder [Unknown]
  - Pharyngeal ulceration [Unknown]
  - Oropharyngeal pain [Unknown]
  - Gastric ulcer [Unknown]
  - Ulcer [Unknown]
  - Feeding disorder [Unknown]
